FAERS Safety Report 10627228 (Version 2)
Quarter: 2014Q4

REPORT INFORMATION
  Report Type: Spontaneous
  Country: US (occurrence: US)
  Receive Date: 20141204
  Receipt Date: 20141211
  Transmission Date: 20150529
  Serious: Yes (Hospitalization, Other)
  Sender: FDA-Public Use
  Company Number: US-GILEAD-2014-0125702

PATIENT
  Age: 42 Year
  Sex: Female

DRUGS (2)
  1. LETAIRIS [Suspect]
     Active Substance: AMBRISENTAN
     Dosage: 10 MG, UNK
     Route: 065
  2. LETAIRIS [Suspect]
     Active Substance: AMBRISENTAN
     Indication: PRODUCT USED FOR UNKNOWN INDICATION
     Dosage: 5 MG, QD
     Route: 065
     Dates: start: 20111107

REACTIONS (6)
  - Catheterisation cardiac [Recovered/Resolved]
  - Back pain [Unknown]
  - Hypotension [Unknown]
  - Pulmonary oedema [Unknown]
  - Chest discomfort [Unknown]
  - Syncope [Unknown]

NARRATIVE: CASE EVENT DATE: 20141129
